FAERS Safety Report 5201464-6 (Version None)
Quarter: 2007Q1

REPORT INFORMATION
  Report Type: 
  Country: None (occurrence: None)
  Receive Date: 20070104
  Receipt Date: 20061218
  Transmission Date: 20070707
  Serious: Yes (Life-Threatening, Hospitalization)
  Sender: FDA-Public Use
  Company Number: S06-UKI-05412-01

PATIENT
  Age: 43 Year
  Sex: Male

DRUGS (8)
  1. CITALOPRAM HYDROBROMIDE [Suspect]
     Dosage: 280 MG ONCE PO
     Route: 048
  2. ALCOHOL (BOTTLE OF VODKA) (ETHANOL) [Suspect]
  3. AMLODIPINE [Suspect]
     Dosage: 560 MG ONCE PO
     Route: 048
  4. ASPIRIN [Suspect]
     Dosage: 7.5  G ONCE
  5. FLUOXETINE [Suspect]
     Dosage: 600 MG ONCE
  6. FOLIC ACID [Suspect]
  7. PARACETAMOL [Suspect]
     Dosage: 16 G ONCE
  8. PERINDOPRIL ERBUMINE [Suspect]
     Dosage: 120 MG ONCE

REACTIONS (8)
  - ALCOHOL USE [None]
  - HAEMODYNAMIC INSTABILITY [None]
  - HYPOKALAEMIA [None]
  - HYPOTENSION [None]
  - METABOLIC ACIDOSIS [None]
  - MULTIPLE DRUG OVERDOSE INTENTIONAL [None]
  - RENAL FAILURE [None]
  - URINE OUTPUT DECREASED [None]
